FAERS Safety Report 15328320 (Version 2)
Quarter: 2018Q3

REPORT INFORMATION
  Report Type: Report from Study
  Country: None (occurrence: US)
  Receive Date: 20180829
  Receipt Date: 20180918
  Transmission Date: 20181010
  Serious: Yes (Hospitalization, Other)
  Sender: FDA-Public Use
  Company Number: US-ABBVIE-18K-163-2459751-00

PATIENT
  Age: 31 Year
  Sex: Male

DRUGS (4)
  1. METFORMIN [Concomitant]
     Active Substance: METFORMIN HYDROCHLORIDE
     Indication: DIABETES MELLITUS
  2. HUMIRA [Suspect]
     Active Substance: ADALIMUMAB
     Indication: COLITIS ULCERATIVE
     Route: 058
     Dates: start: 2017
  3. ROWASA [Concomitant]
     Active Substance: MESALAMINE
     Indication: COLITIS ULCERATIVE
  4. MESALAMINE. [Concomitant]
     Active Substance: MESALAMINE
     Indication: COLITIS ULCERATIVE

REACTIONS (17)
  - Hepatobiliary scan abnormal [Unknown]
  - Blood bilirubin increased [Recovered/Resolved]
  - Gallbladder disorder [Recovered/Resolved]
  - Pyrexia [Unknown]
  - Ascites [Unknown]
  - Gamma-glutamyltransferase increased [Unknown]
  - Hepatic enzyme increased [Recovered/Resolved]
  - Abdominal pain upper [Unknown]
  - Pancreatic steatosis [Unknown]
  - Seroma [Unknown]
  - Splenomegaly [Unknown]
  - Gallbladder oedema [Unknown]
  - Atelectasis [Unknown]
  - Viral infection [Unknown]
  - Malaise [Not Recovered/Not Resolved]
  - Gastrointestinal oedema [Unknown]
  - Oedema [Unknown]

NARRATIVE: CASE EVENT DATE: 201803
